FAERS Safety Report 5346905-9 (Version None)
Quarter: 2007Q2

REPORT INFORMATION
  Report Type: 
  Country: None (occurrence: None)
  Receive Date: 20070502
  Receipt Date: 20070306
  Transmission Date: 20071010
  Serious: Yes (Other)
  Sender: FDA-Public Use
  Company Number: 153730USA

PATIENT
  Age: 38 Year
  Sex: Female

DRUGS (7)
  1. SALBUTAMOL SULFATE    (SALBUTAMOL) [Suspect]
     Dosage: ONE DOSE, RESPIRATORY
     Route: 055
     Dates: start: 20070101
  2. ACETYLSALICYLIC ACID SRT [Concomitant]
  3. TRAZODONE HCL [Concomitant]
  4. PIOGLITAZONE [Concomitant]
  5. LOSARTAN POTASSIUM [Concomitant]
  6. SIMVASTATIN [Concomitant]
  7. GLIPIZIDE [Concomitant]

REACTIONS (3)
  - HYPERSENSITIVITY [None]
  - SWOLLEN TONGUE [None]
  - URTICARIA [None]
